FAERS Safety Report 8094266-7 (Version None)
Quarter: 2011Q4

REPORT INFORMATION
  Report Type: 
  Country: None (occurrence: None)
  Receive Date: 20111222
  Receipt Date: 20110831
  Transmission Date: 20120403
  Serious: Yes (Hospitalization)
  Sender: FDA-Public Use
  Company Number: UTC-009406

PATIENT
  Age: 18 Year
  Sex: Male
  Weight: 36.3 kg

DRUGS (4)
  1. ADCIRCA [Concomitant]
  2. DIURETICS (DIURETICS) [Concomitant]
  3. TYVASO [Suspect]
     Indication: COR PULMONALE CHRONIC
     Dosage: 216 MCG  (54MCG, 4 IN 1 D), INHALATION
     Route: 055
     Dates: start: 20101029
  4. LETAIRIS [Concomitant]

REACTIONS (1)
  - PYREXIA [None]
